FAERS Safety Report 15130095 (Version 4)
Quarter: 2020Q3

REPORT INFORMATION
  Report Type: Report from Study
  Country: US (occurrence: US)
  Receive Date: 20180711
  Receipt Date: 20190410
  Transmission Date: 20201104
  Serious: Yes (Other)
  Sender: FDA-Public Use
  Company Number: US-ROCHE-2150431

PATIENT
  Age: 63 Year
  Sex: Female
  Weight: 57.8 kg

DRUGS (8)
  1. LENALIDOMIDE [Suspect]
     Active Substance: LENALIDOMIDE
     Indication: B-CELL LYMPHOMA
     Dosage: ORAL CAPSULES AT DOSES OF 10, 15, OR 20 MILLIGRAMS (MG) ON DAYS 1 TO 21 OF EACH 28?DAY CYCLE FOR UP
     Route: 048
     Dates: start: 20171108
  2. DIGOXIN. [Concomitant]
     Active Substance: DIGOXIN
     Indication: CARDIAC FAILURE CONGESTIVE
     Route: 065
     Dates: start: 2016
  3. ENALAPRIL [Concomitant]
     Active Substance: ENALAPRIL
     Indication: CARDIAC FAILURE CONGESTIVE
     Route: 065
     Dates: start: 2016
  4. CARVEDILOL. [Concomitant]
     Active Substance: CARVEDILOL
     Indication: CARDIAC FAILURE CONGESTIVE
     Route: 065
     Dates: start: 2016
  5. LASIX [Concomitant]
     Active Substance: FUROSEMIDE
     Indication: OEDEMA
     Route: 065
     Dates: start: 20170421
  6. POLATUZUMAB VEDOTIN. [Suspect]
     Active Substance: POLATUZUMAB VEDOTIN
     Indication: B-CELL LYMPHOMA
     Dosage: 1.4 OR 1.8 MILLIGRAMS PER KILOGRAM (MG/KG) ON DAY 1 OF EACH 28?DAY CYCLE FOR UP TO 6 MONTHS?DATE OF
     Route: 042
     Dates: start: 20171108
  7. ASPIRIN. [Concomitant]
     Active Substance: ASPIRIN
     Dosage: ANTITHROMBOTIC
     Route: 065
     Dates: start: 20180110
  8. OBINUTUZUMAB. [Suspect]
     Active Substance: OBINUTUZUMAB
     Indication: B-CELL LYMPHOMA
     Dosage: DAYS 1, 8 AND 15 OF CYCLE 1 AND ON DAY 1 OF CYCLES 2 TO 6 FOLLOWED BY POST?INDUCTION TREATMENT AT A
     Route: 042
     Dates: start: 20171108

REACTIONS (1)
  - Myelodysplastic syndrome [Not Recovered/Not Resolved]

NARRATIVE: CASE EVENT DATE: 20180619
